FAERS Safety Report 21059027 (Version 1)
Quarter: 2022Q3

REPORT INFORMATION
  Report Type: Spontaneous
  Country: US (occurrence: None)
  Receive Date: 20220708
  Receipt Date: 20220708
  Transmission Date: 20221026
  Serious: Yes (Other)
  Sender: FDA-Public Use
  Company Number: None

PATIENT
  Age: 21 Year
  Sex: Female
  Weight: 43.9 kg

DRUGS (1)
  1. OPTIRAY 320 [Suspect]
     Active Substance: IOVERSOL
     Indication: Computerised tomogram
     Dosage: OTHER FREQUENCY : ONCE;?
     Route: 040
     Dates: start: 20220608, end: 20220608

REACTIONS (5)
  - Nausea [None]
  - Rash [None]
  - Throat irritation [None]
  - Throat tightness [None]
  - Resuscitation [None]

NARRATIVE: CASE EVENT DATE: 20220608
